FAERS Safety Report 10960913 (Version 1)
Quarter: 2015Q1

REPORT INFORMATION
  Report Type: Spontaneous
  Country: US (occurrence: None)
  Receive Date: 20150326
  Receipt Date: 20150326
  Transmission Date: 20150721
  Serious: No
  Sender: FDA-Public Use
  Company Number: None

PATIENT
  Age: 92 Year
  Sex: Female

DRUGS (1)
  1. PROLIA [Suspect]
     Active Substance: DENOSUMAB
     Indication: OSTEOPOROSIS
     Dosage: Q 6 MONTH
     Route: 058
     Dates: start: 20110809, end: 201410

REACTIONS (2)
  - Treatment failure [None]
  - Fracture [None]

NARRATIVE: CASE EVENT DATE: 20141022
